FAERS Safety Report 7466458-9 (Version None)
Quarter: 2011Q2

REPORT INFORMATION
  Report Type: 
  Country: None (occurrence: None)
  Receive Date: 20110509
  Receipt Date: 20100726
  Transmission Date: 20111010
  Serious: No
  Sender: FDA-Public Use
  Company Number: US-ALEXION-A201000891

PATIENT
  Sex: Male

DRUGS (2)
  1. SOLIRIS [Suspect]
     Indication: PAROXYSMAL NOCTURNAL HAEMOGLOBINURIA
     Dosage: UNK
     Route: 042
  2. MULTIVITAMIN                       /01229101/ [Concomitant]
     Dosage: UNK
     Dates: end: 20100101

REACTIONS (19)
  - IRRITABILITY [None]
  - DYSPHAGIA [None]
  - ARTHRALGIA [None]
  - FEELING COLD [None]
  - EPISTAXIS [None]
  - DIZZINESS [None]
  - MOOD SWINGS [None]
  - DYSPNOEA [None]
  - CHILLS [None]
  - CONSTIPATION [None]
  - JAUNDICE [None]
  - DECREASED APPETITE [None]
  - ABDOMINAL DISTENSION [None]
  - HAEMOGLOBINURIA [None]
  - HAEMOLYSIS [None]
  - ABDOMINAL PAIN [None]
  - HEADACHE [None]
  - BACK PAIN [None]
  - FATIGUE [None]
